FAERS Safety Report 21237513 (Version 1)
Quarter: 2022Q3

REPORT INFORMATION
  Report Type: Report from Study
  Country: CO (occurrence: CO)
  Receive Date: 20220822
  Receipt Date: 20220822
  Transmission Date: 20221027
  Serious: Yes (Life-Threatening, Hospitalization)
  Sender: FDA-Public Use
  Company Number: CO-ABBVIE-22K-036-4511352-00

PATIENT
  Age: 73 Year
  Sex: Male
  Weight: 89 kg

DRUGS (2)
  1. ZEMPLAR [Suspect]
     Active Substance: PARICALCITOL
     Indication: Hyperparathyroidism secondary
     Route: 048
     Dates: start: 20150722, end: 20220813
  2. ZEMPLAR [Suspect]
     Active Substance: PARICALCITOL
     Indication: Chronic kidney disease

REACTIONS (3)
  - Myocardial infarction [Recovering/Resolving]
  - Cardiac disorder [Recovering/Resolving]
  - Blood cholesterol abnormal [Recovering/Resolving]

NARRATIVE: CASE EVENT DATE: 20220814
